FAERS Safety Report 8455377-7 (Version None)
Quarter: 2012Q2

REPORT INFORMATION
  Report Type: 
  Country: None (occurrence: None)
  Receive Date: 20120621
  Receipt Date: 20120616
  Transmission Date: 20120825
  Serious: Yes (Other)
  Sender: FDA-Public Use
  Company Number: US-PFIZER INC-2012145209

PATIENT
  Sex: Female
  Weight: 68.027 kg

DRUGS (2)
  1. ALAVERT [Suspect]
     Indication: ALLERGIC SINUSITIS
     Dosage: UNK, DAILY
     Dates: start: 20120614, end: 20120614
  2. SYNTHROID [Concomitant]
     Indication: THYROID DISORDER
     Dosage: 0.1 UG, DAILY

REACTIONS (5)
  - HEADACHE [None]
  - GAIT DISTURBANCE [None]
  - MENTAL IMPAIRMENT [None]
  - FEELING ABNORMAL [None]
  - SEDATION [None]
